FAERS Safety Report 8513048-2 (Version None)
Quarter: 2012Q3

REPORT INFORMATION
  Report Type: 
  Country: None (occurrence: None)
  Receive Date: 20120716
  Receipt Date: 20120706
  Transmission Date: 20120928
  Serious: Yes (Other)
  Sender: FDA-Public Use
  Company Number: US-BAXTER-2012BAX010784

PATIENT
  Sex: Male

DRUGS (2)
  1. GAMMAGARD LIQUID [Suspect]
     Route: 042
     Dates: end: 20120601
  2. GAMMAGARD LIQUID [Suspect]
     Dosage: 2 VIALS
     Route: 042
     Dates: start: 20120617, end: 20120617

REACTIONS (3)
  - ANTIBODY TEST ABNORMAL [None]
  - HAEMOGLOBIN DECREASED [None]
  - HAEMOLYTIC ANAEMIA [None]
